FAERS Safety Report 18195020 (Version 1)
Quarter: 2020Q3

REPORT INFORMATION
  Report Type: Spontaneous
  Country: IR (occurrence: IR)
  Receive Date: 20200826
  Receipt Date: 20200826
  Transmission Date: 20201103
  Serious: Yes (Hospitalization, Other)
  Sender: FDA-Public Use
  Company Number: IR-VISTAPHARM, INC.-VER202008-001440

PATIENT
  Age: 43 Year
  Sex: Female

DRUGS (7)
  1. COLISTIN [Concomitant]
     Active Substance: COLISTIN
     Indication: SUPERINFECTION BACTERIAL
     Dosage: 4.5 MILLION UNITS
  2. VANCOMYCIN [Concomitant]
     Active Substance: VANCOMYCIN
     Indication: SUPERINFECTION BACTERIAL
     Dosage: 1 G
  3. PREDNISOLONE. [Suspect]
     Active Substance: PREDNISOLONE
     Indication: PSORIASIS
     Dosage: 5 MG/DAY
  4. CIPROFLOXACIN. [Concomitant]
     Active Substance: CIPROFLOXACIN
     Indication: SUPERINFECTION BACTERIAL
     Dosage: 400 MG
     Route: 042
  5. ACYCLOVIR. [Concomitant]
     Active Substance: ACYCLOVIR
     Indication: HERPES VIRUS INFECTION
     Dosage: 1500  MG/DAY
  6. MEROPENEM. [Concomitant]
     Active Substance: MEROPENEM
     Indication: SEPSIS
     Dosage: 1 G
     Route: 042
  7. METHOTREXATE. [Suspect]
     Active Substance: METHOTREXATE
     Indication: PSORIASIS
     Dosage: 10 MG/WEEK
     Route: 048

REACTIONS (2)
  - Acarodermatitis [Recovering/Resolving]
  - Kaposi^s varicelliform eruption [Recovering/Resolving]
